FAERS Safety Report 6130090-X (Version None)
Quarter: 2009Q1

REPORT INFORMATION
  Report Type: 
  Country: None (occurrence: None)
  Receive Date: 20090324
  Receipt Date: 20090312
  Transmission Date: 20090719
  Serious: Yes (Hospitalization)
  Sender: FDA-Public Use
  Company Number: US-BRISTOL-MYERS SQUIBB COMPANY-14553176

PATIENT
  Age: 75 Year
  Sex: Female

DRUGS (7)
  1. LISINOPRIL [Suspect]
  2. COUMADIN [Suspect]
  3. ZOLOFT [Suspect]
  4. LEVAQUIN [Suspect]
  5. PREVACID [Suspect]
  6. LASIX [Suspect]
  7. AMIODARONE HCL [Suspect]

REACTIONS (3)
  - DIARRHOEA [None]
  - RENAL FAILURE ACUTE [None]
  - VOMITING [None]
